FAERS Safety Report 23365369 (Version 1)
Quarter: 2024Q1

REPORT INFORMATION
  Report Type: Spontaneous
  Country: US (occurrence: US)
  Receive Date: 20240104
  Receipt Date: 20240104
  Transmission Date: 20240409
  Serious: No
  Sender: FDA-Public Use
  Company Number: US-009507513-2312USA002695

PATIENT
  Age: 83 Year
  Sex: Female

DRUGS (3)
  1. KEYTRUDA [Suspect]
     Active Substance: PEMBROLIZUMAB
     Dosage: UNK
     Route: 042
     Dates: start: 20231107
  2. LENVATINIB MESYLATE [Suspect]
     Active Substance: LENVATINIB MESYLATE
     Indication: Endometrial cancer
     Dosage: 20 MILLIGRAM, DAILY
     Route: 048
     Dates: start: 20231106
  3. PROCHLORPERAZINE [Concomitant]
     Active Substance: PROCHLORPERAZINE
     Indication: Nausea
     Dosage: UNK
     Dates: start: 20231105

REACTIONS (2)
  - Cough [Unknown]
  - Device issue [Unknown]

NARRATIVE: CASE EVENT DATE: 20231101
